FAERS Safety Report 11893820 (Version 1)
Quarter: 2016Q1

REPORT INFORMATION
  Report Type: Spontaneous
  Country: JP (occurrence: JP)
  Receive Date: 20160106
  Receipt Date: 20160106
  Transmission Date: 20160526
  Serious: Yes (Life-Threatening, Other)
  Sender: FDA-Public Use
  Company Number: PHHY2015JP172457

PATIENT
  Age: 76 Year
  Sex: Female

DRUGS (2)
  1. PACLITAXEL. [Suspect]
     Active Substance: PACLITAXEL
     Indication: SMALL CELL LUNG CANCER
     Route: 065
  2. TOPOTECAN [Suspect]
     Active Substance: TOPOTECAN\TOPOTECAN HYDROCHLORIDE
     Indication: SMALL CELL LUNG CANCER
     Route: 042
     Dates: start: 200704, end: 201404

REACTIONS (1)
  - Interstitial lung disease [Unknown]
